FAERS Safety Report 7216659-X (Version None)
Quarter: 2011Q1

REPORT INFORMATION
  Report Type: 
  Country: None (occurrence: None)
  Receive Date: 20110110
  Receipt Date: 20101227
  Transmission Date: 20110831
  Serious: No
  Sender: FDA-Public Use
  Company Number: US-BIOGENIDEC-2011BI000304

PATIENT
  Age: 36 Year
  Sex: Male

DRUGS (3)
  1. AVONEX [Concomitant]
     Route: 030
  2. TYSABRI [Suspect]
     Indication: MULTIPLE SCLEROSIS
     Route: 042
     Dates: start: 20090723, end: 20101111
  3. AVONEX [Concomitant]
     Indication: MULTIPLE SCLEROSIS
     Route: 030
     Dates: start: 20051005

REACTIONS (7)
  - CHROMATURIA [None]
  - NAUSEA [None]
  - DIZZINESS [None]
  - MICTURITION URGENCY [None]
  - BLINDNESS UNILATERAL [None]
  - POLLAKIURIA [None]
  - VOMITING [None]
